FAERS Safety Report 7544310-8 (Version None)
Quarter: 2011Q2

REPORT INFORMATION
  Report Type: 
  Country: None (occurrence: None)
  Receive Date: 20110613
  Receipt Date: 20080130
  Transmission Date: 20111010
  Serious: Yes (Other)
  Sender: FDA-Public Use
  Company Number: PHHY2008CA00856

PATIENT
  Sex: Male

DRUGS (4)
  1. BETA BLOCKING AGENTS [Concomitant]
     Indication: HYPERTENSION
  2. CALCIUM CHANNEL BLOCKERS [Concomitant]
     Indication: HYPERTENSION
  3. DIOVAN HCT [Suspect]
     Indication: HYPERTENSION
     Dosage: 162.5 MG, UNK
     Route: 048
  4. DIURETICS [Concomitant]
     Indication: HYPERTENSION

REACTIONS (1)
  - URINE ALBUMIN/CREATININE RATIO INCREASED [None]
